FAERS Safety Report 23708261 (Version 1)
Quarter: 2024Q2

REPORT INFORMATION
  Report Type: Spontaneous
  Country: US (occurrence: US)
  Receive Date: 20240404
  Receipt Date: 20240404
  Transmission Date: 20240715
  Serious: No
  Sender: FDA-Public Use
  Company Number: US-BIOGEN-2024BI01258207

PATIENT
  Sex: Female

DRUGS (10)
  1. VUMERITY [Suspect]
     Active Substance: DIROXIMEL FUMARATE
     Indication: Multiple sclerosis
     Dosage: TAKE 2 CAPSULES (462MG) BY MOUTH TWICE DAILY AS DIRECTED
     Route: 050
  2. BACLOFEN [Concomitant]
     Active Substance: BACLOFEN
     Route: 050
  3. VITAMIN B12 [Concomitant]
     Active Substance: CYANOCOBALAMIN
     Route: 050
  4. ASPIRIN [Concomitant]
     Active Substance: ASPIRIN
     Route: 050
  5. POTASSIUM [Concomitant]
     Active Substance: POTASSIUM
     Route: 050
  6. ZINC [Concomitant]
     Active Substance: PYRITHIONE ZINC\ZINC\ZINC CHLORIDE
     Route: 050
  7. ATORVASTATIN CALCIUM [Concomitant]
     Active Substance: ATORVASTATIN CALCIUM
     Route: 050
  8. VITAMIN D3 [Concomitant]
     Active Substance: CHOLECALCIFEROL
     Route: 050
  9. METOPROLOL TARTRATE [Concomitant]
     Active Substance: METOPROLOL TARTRATE
     Route: 050
  10. ELIQUIS [Concomitant]
     Active Substance: APIXABAN
     Route: 050

REACTIONS (2)
  - Gait disturbance [Unknown]
  - Fall [Recovered/Resolved]
